FAERS Safety Report 15304512 (Version 1)
Quarter: 2018Q3

REPORT INFORMATION
  Report Type: Spontaneous
  Country: US (occurrence: US)
  Receive Date: 20180809
  Receipt Date: 20180809
  Transmission Date: 20181010
  Serious: Yes (Hospitalization)
  Sender: FDA-Public Use
  Company Number: None

PATIENT
  Sex: Female

DRUGS (6)
  1. NOXAFIL [Concomitant]
     Active Substance: POSACONAZOLE
  2. COLSEVELAM [Concomitant]
  3. ACYCLOVIR. [Concomitant]
     Active Substance: ACYCLOVIR
  4. SENNA?S [Concomitant]
     Active Substance: DOCUSATE SODIUM\SENNOSIDES
  5. NEUPOGEN [Suspect]
     Active Substance: FILGRASTIM
     Indication: ACUTE MYELOID LEUKAEMIA
     Dosage: ?          OTHER FREQUENCY:UNK;?
     Route: 065
  6. TRAMADOL HCL [Concomitant]
     Active Substance: TRAMADOL HYDROCHLORIDE

REACTIONS (1)
  - Hospitalisation [None]
